FAERS Safety Report 7271630-7 (Version None)
Quarter: 2011Q1

REPORT INFORMATION
  Report Type: 
  Country: None (occurrence: None)
  Receive Date: 20110203
  Receipt Date: 20091109
  Transmission Date: 20110831
  Serious: Yes (Death)
  Sender: FDA-Public Use
  Company Number: DK-TEVA-207025ISR

PATIENT
  Age: 77 Year
  Sex: Female

DRUGS (1)
  1. AMLODIPINE [Suspect]
     Indication: HYPERTENSION
     Dates: start: 20060530

REACTIONS (17)
  - ROAD TRAFFIC ACCIDENT [None]
  - HUMERUS FRACTURE [None]
  - STERNAL FRACTURE [None]
  - NEPHROSCLEROSIS [None]
  - THERMAL BURN [None]
  - PELVIC FRACTURE [None]
  - FOREARM FRACTURE [None]
  - TRAUMATIC LUNG INJURY [None]
  - ANKLE FRACTURE [None]
  - TRAUMATIC LIVER INJURY [None]
  - SKULL FRACTURED BASE [None]
  - FIBULA FRACTURE [None]
  - DRUG LEVEL INCREASED [None]
  - EMPHYSEMA [None]
  - RIB FRACTURE [None]
  - TRAUMATIC BRAIN INJURY [None]
  - ARTERIOSCLEROSIS CORONARY ARTERY [None]
